FAERS Safety Report 5249195-0 (Version None)
Quarter: 2007Q1

REPORT INFORMATION
  Report Type: 
  Country: None (occurrence: None)
  Receive Date: 20070228
  Receipt Date: 20070219
  Transmission Date: 20070707
  Serious: Yes (Hospitalization)
  Sender: FDA-Public Use
  Company Number: SE-ROCHE-461789

PATIENT
  Age: 18 Year
  Sex: Male
  Weight: 82.5 kg

DRUGS (3)
  1. ROACCUTAN [Suspect]
     Indication: ACNE
     Route: 048
     Dates: start: 20020820, end: 20021010
  2. ROACCUTAN [Suspect]
     Route: 048
     Dates: start: 20021010, end: 20030415
  3. ERYTROMYCIN [Concomitant]
     Dates: start: 20020615, end: 20021115

REACTIONS (5)
  - ANXIETY [None]
  - DEPRESSION [None]
  - OBSESSIVE THOUGHTS [None]
  - SUICIDE ATTEMPT [None]
  - WEIGHT DECREASED [None]
